FAERS Safety Report 4947987-6 (Version None)
Quarter: 2006Q1

REPORT INFORMATION
  Report Type: 
  Country: None (occurrence: None)
  Receive Date: 20060320
  Receipt Date: 20050311
  Transmission Date: 20060701
  Serious: Yes (Hospitalization, Other)
  Sender: FDA-Public Use
  Company Number: US-MERCK-0503USA02705

PATIENT
  Age: 63 Year
  Sex: Male
  Weight: 114 kg

DRUGS (11)
  1. VIOXX [Suspect]
     Indication: ARTHRITIS
     Route: 048
     Dates: start: 20030601, end: 20040218
  2. VIOXX [Suspect]
     Route: 048
     Dates: start: 20030601, end: 20040218
  3. VIOXX [Suspect]
     Route: 048
     Dates: start: 20030601, end: 20040218
  4. VIOXX [Suspect]
     Route: 048
     Dates: start: 20030601, end: 20040218
  5. VIOXX [Suspect]
     Indication: GOUT
     Route: 048
     Dates: start: 20030601, end: 20040218
  6. VIOXX [Suspect]
     Route: 048
     Dates: start: 20030601, end: 20040218
  7. VIOXX [Suspect]
     Route: 048
     Dates: start: 20030601, end: 20040218
  8. VIOXX [Suspect]
     Route: 048
     Dates: start: 20030601, end: 20040218
  9. PLAVIX [Concomitant]
     Route: 065
  10. PROTONIX [Concomitant]
     Route: 065
  11. ASPIRIN [Concomitant]
     Route: 065

REACTIONS (19)
  - ABDOMINAL PAIN UPPER [None]
  - ACUTE CORONARY SYNDROME [None]
  - ACUTE MYOCARDIAL INFARCTION [None]
  - BLOOD CHOLESTEROL INCREASED [None]
  - BRADYCARDIA [None]
  - BURSITIS INFECTIVE [None]
  - CEREBROVASCULAR ACCIDENT [None]
  - CHEST PAIN [None]
  - CORONARY ARTERY DISEASE [None]
  - DIABETES MELLITUS NON-INSULIN-DEPENDENT [None]
  - DRUG HYPERSENSITIVITY [None]
  - DUODENAL ULCER [None]
  - GASTROINTESTINAL HAEMORRHAGE [None]
  - HEADACHE [None]
  - HYPOTENSION [None]
  - MYOCARDIAL ISCHAEMIA [None]
  - PRURITUS [None]
  - PSORIASIS [None]
  - SINUSITIS [None]
